FAERS Safety Report 11546809 (Version 1)
Quarter: 2015Q3

REPORT INFORMATION
  Report Type: Spontaneous
  Country: US (occurrence: US)
  Receive Date: 20150924
  Receipt Date: 20150924
  Transmission Date: 20151125
  Serious: Yes (Hospitalization)
  Sender: FDA-Public Use
  Company Number: US-PFIZER INC-2015317710

PATIENT
  Age: 32 Year
  Sex: Male
  Weight: 68 kg

DRUGS (13)
  1. CARVEDILOL. [Concomitant]
     Active Substance: CARVEDILOL
     Dosage: 6.25 MG, 2X/DAY
     Route: 048
  2. A-HYDROCORT [Concomitant]
     Active Substance: HYDROCORTISONE SODIUM SUCCINATE
     Dosage: DOUBLE AND TRIPLE DOSES WHEN HE GETS INJECTIONS IN EYES
  3. MODAFINIL. [Concomitant]
     Active Substance: MODAFINIL
  4. FLUDROCORTISONE [Concomitant]
     Active Substance: FLUDROCORTISONE
     Indication: ADDISON^S DISEASE
     Dosage: 0.1 MG, DAILY (0.1 MG TABLET, ONE A DAY)
  5. SOLU-CORTEF [Suspect]
     Active Substance: HYDROCORTISONE SODIUM SUCCINATE
     Indication: ADRENOCORTICAL INSUFFICIENCY ACUTE
     Dosage: 100 MG, INJECTION INTO MUSCLE ONE TIME
     Route: 030
     Dates: start: 1998
  6. A-HYDROCORT [Concomitant]
     Active Substance: HYDROCORTISONE SODIUM SUCCINATE
     Dosage: 30 MG, ONE IN MORNING AND AT NIGHT
  7. AMLODIPINE BESYLATE. [Concomitant]
     Active Substance: AMLODIPINE BESYLATE
     Indication: CARDIAC DISORDER
     Dosage: 2.5 MG, DAILY (2.5MG TABLET, ONE A DAY)
     Route: 048
  8. INSULIN PUMP [Concomitant]
     Active Substance: INSULIN NOS
     Dosage: WHEN HE EATS, HE GIVES HIMSELF AN APPROPRIATE DOSE
  9. HYDROCO ACETAMIN [Concomitant]
     Active Substance: ACETAMINOPHEN\HYDROCODONE
     Indication: PAIN
     Dosage: [HYDROCODONE, 10MG]/[ACETAMINOPHEN, 325MG]EVERY 6 HOURS AS NEEDED
     Route: 048
  10. FLUDROCORTISONE [Concomitant]
     Active Substance: FLUDROCORTISONE
     Indication: BLOOD ELECTROLYTES ABNORMAL
  11. LISINOPRIL. [Concomitant]
     Active Substance: LISINOPRIL
     Indication: CARDIAC DISORDER
     Dosage: 20 MG, DAILY
  12. A-HYDROCORT [Concomitant]
     Active Substance: HYDROCORTISONE SODIUM SUCCINATE
     Dosage: IF UNDER OTHER STRESSES GETS DOUBLE AND TRIPLE DOSE
  13. INSULIN PUMP [Concomitant]
     Active Substance: INSULIN NOS
     Indication: DIABETES MELLITUS
     Dosage: 80 UNITS A DAY OVER 24 HR PERIOD, AT MIDNIGHT SLOWS AND AT 7AM INCREASES

REACTIONS (2)
  - Condition aggravated [Recovering/Resolving]
  - Adrenocortical insufficiency acute [Recovering/Resolving]

NARRATIVE: CASE EVENT DATE: 20150603
